FAERS Safety Report 8406529-3 (Version None)
Quarter: 2012Q2

REPORT INFORMATION
  Report Type: 
  Country: None (occurrence: None)
  Receive Date: 20120529
  Receipt Date: 20110512
  Transmission Date: 20120825
  Serious: Yes (Other)
  Sender: FDA-Public Use
  Company Number: JP-2012-14928

PATIENT

DRUGS (2)
  1. PROBUCOL [Suspect]
  2. CILOSTAZOL [Suspect]

REACTIONS (1)
  - HEPATIC FAILURE [None]
